FAERS Safety Report 19742737 (Version 1)
Quarter: 2021Q3

REPORT INFORMATION
  Report Type: Report from Study
  Country: BR (occurrence: BR)
  Receive Date: 20210824
  Receipt Date: 20210824
  Transmission Date: 20211014
  Serious: Yes (Hospitalization, Disabling, Other)
  Sender: FDA-Public Use
  Company Number: NVSC2020BR150747

PATIENT
  Age: 29 Year
  Sex: Male
  Weight: 65 kg

DRUGS (6)
  1. VALPROIC ACID. [Concomitant]
     Active Substance: VALPROIC ACID
     Indication: BIPOLAR DISORDER
     Dosage: 4 TABLETS OF 250 MG, BID
     Route: 048
     Dates: start: 201507
  2. GILENYA [Suspect]
     Active Substance: FINGOLIMOD HYDROCHLORIDE
     Indication: MULTIPLE SCLEROSIS
     Dosage: 0.5 MG, QD
     Route: 065
     Dates: start: 20190416, end: 202102
  3. CLOZAPINE. [Concomitant]
     Active Substance: CLOZAPINE
     Dosage: 4 TABLETS OF 100 MG, QD
     Route: 048
     Dates: start: 2017
  4. LITHIUM CARBONATE. [Concomitant]
     Active Substance: LITHIUM CARBONATE
     Indication: BIPOLAR DISORDER
     Dosage: UNK MG (4 TABLETS OF 300 MG), QD
     Route: 048
     Dates: start: 20140308
  5. CLOMIPRAMINE HYDROCHLORIDE. [Suspect]
     Active Substance: CLOMIPRAMINE HYDROCHLORIDE
     Indication: BIPOLAR DISORDER
     Dosage: 1 DF, QD
     Route: 048
     Dates: start: 2018
  6. ATROPINE SULFATE. [Concomitant]
     Active Substance: ATROPINE SULFATE
     Indication: PRODUCT USED FOR UNKNOWN INDICATION
     Dosage: 2 DROPS QD
     Route: 048

REACTIONS (14)
  - Multiple sclerosis relapse [Recovered/Resolved]
  - Asthenia [Unknown]
  - Multiple sclerosis relapse [Recovered/Resolved with Sequelae]
  - Pyrexia [Recovered/Resolved with Sequelae]
  - Multiple sclerosis relapse [Recovered/Resolved]
  - Vitamin D decreased [Unknown]
  - Infection [Recovered/Resolved]
  - Infection [Recovered/Resolved]
  - Movement disorder [Recovered/Resolved]
  - Movement disorder [Recovered/Resolved]
  - Gait disturbance [Not Recovered/Not Resolved]
  - Vitamin B complex deficiency [Unknown]
  - Movement disorder [Recovering/Resolving]
  - Pyrexia [Recovered/Resolved]

NARRATIVE: CASE EVENT DATE: 20200424
